FAERS Safety Report 9889259 (Version 5)
Quarter: 2014Q2

REPORT INFORMATION
  Report Type: Spontaneous
  Country: US (occurrence: US)
  Receive Date: 20140211
  Receipt Date: 20140612
  Transmission Date: 20141212
  Serious: Yes (Hospitalization)
  Sender: FDA-Public Use
  Company Number: US-B.I. PHARMACEUTICALS,INC./RIDGEFIELD-2014-BI-05338BP

PATIENT
  Sex: Male
  Weight: 81.65 kg

DRUGS (31)
  1. PRADAXA [Suspect]
     Indication: ANTICOAGULANT THERAPY
     Dosage: 300 MG
     Route: 048
     Dates: start: 20120217, end: 20120225
  2. MULTIVITAMIN [Concomitant]
     Route: 065
  3. BUPROPION HCL [Concomitant]
     Dosage: 300 MG
     Route: 065
  4. CALCIUM [Concomitant]
     Route: 065
  5. MUCINEX [Concomitant]
     Indication: PULMONARY CONGESTION
     Dosage: 1200 MG
     Route: 065
  6. PRILOSEC [Concomitant]
     Dosage: 20 MG
     Route: 065
  7. SYNTHROID [Concomitant]
     Dosage: 112 MCG
     Route: 065
     Dates: start: 2006
  8. AMIODARONE HCL [Concomitant]
     Dosage: 200 MG
     Route: 065
     Dates: start: 2008
  9. OXYBUTYNIN [Concomitant]
     Route: 065
     Dates: start: 2008
  10. ZOCOR [Concomitant]
     Dosage: 40 MG
     Route: 065
     Dates: start: 2006
  11. LORATADINE [Concomitant]
     Dosage: 10 MG
     Route: 065
     Dates: start: 2006
  12. METOPROLOL [Concomitant]
     Route: 065
     Dates: start: 2011, end: 201402
  13. TEMAZEPAM [Concomitant]
     Dosage: 15 MG
     Route: 065
     Dates: start: 2005
  14. FUROSEMIDE [Concomitant]
     Route: 065
     Dates: start: 2006
  15. CLONAZEPAM [Concomitant]
     Route: 065
     Dates: start: 2010
  16. BENICAR HCT [Concomitant]
     Route: 065
  17. DETROL LA [Concomitant]
     Dosage: 4 MG
     Route: 065
  18. FAMOTIDINE [Concomitant]
     Dosage: 40 MG
     Route: 065
  19. FLONASE [Concomitant]
     Route: 065
  20. ASPIRIN [Concomitant]
     Dosage: 81 MG
     Route: 065
  21. OMEGA 3 [Concomitant]
     Dosage: 1000 MG
     Route: 065
  22. DESOXIMETASONE [Concomitant]
     Route: 065
  23. DESONIDE [Concomitant]
     Route: 065
  24. NIZORAL [Concomitant]
     Route: 065
  25. PROVENTIL HFA [Concomitant]
     Route: 065
  26. LEVOFLOXACIN [Concomitant]
     Dosage: 500 MG
     Route: 065
  27. HYDROCHLOROTHIAZIDE [Concomitant]
     Dosage: 25 MG
     Route: 065
  28. GUAIFENESIN DM COUGH + CHEST [Concomitant]
     Route: 065
  29. VITAMIN B12 [Concomitant]
     Dosage: 1000 MCG
     Route: 065
  30. FISH OIL [Concomitant]
     Dosage: 1000 MG
     Route: 065
  31. CAL-CITRATE [Concomitant]
     Route: 065

REACTIONS (3)
  - Gastrointestinal haemorrhage [Unknown]
  - Retroperitoneal haemorrhage [Unknown]
  - Haematoma [Unknown]
